FAERS Safety Report 8953249 (Version 1)
Quarter: 2012Q4

REPORT INFORMATION
  Report Type: 
  Country: GB (occurrence: GB)
  Receive Date: 20121206
  Receipt Date: 20121206
  Transmission Date: 20130627
  Serious: Yes (Life-Threatening)
  Sender: FDA-Public Use
  Company Number: GB-AMGEN-GBRSP2012078329

PATIENT
  Age: 55 Year
  Sex: Female

DRUGS (4)
  1. ENBREL [Suspect]
     Indication: RHEUMATOID ARTHRITIS
     Dosage: 50 mg, weekly
     Route: 058
     Dates: start: 20120515, end: 20121101
  2. METHOTREXATE [Concomitant]
     Indication: RHEUMATOID ARTHRITIS
     Dosage: 25 mg, qwk
     Route: 048
     Dates: start: 20060911
  3. SULPHASALAZINE [Concomitant]
     Indication: RHEUMATOID ARTHRITIS
     Dosage: 1 g, bid
     Route: 048
     Dates: start: 20030922
  4. FOLIC ACID [Concomitant]
     Dosage: 5 mg, qwk
     Route: 048
     Dates: start: 20060911

REACTIONS (1)
  - Endometrial adenocarcinoma [Unknown]
